FAERS Safety Report 22208902 (Version 1)
Quarter: 2023Q2

REPORT INFORMATION
  Report Type: Spontaneous
  Country: US (occurrence: US)
  Receive Date: 20230413
  Receipt Date: 20230413
  Transmission Date: 20230722
  Serious: Yes (Other)
  Sender: FDA-Public Use
  Company Number: US-PROCTER_AND_GAMBLE-GS23039093

PATIENT

DRUGS (2)
  1. OLD SPICE SWEAT DEFENSE PURE SPORT PLUS DRY [Suspect]
     Active Substance: ALUMINUM CHLOROHYDRATE
     Route: 061
  2. COSMETICS [Concomitant]
     Active Substance: COSMETICS

REACTIONS (3)
  - Plasma cell myeloma [Not Recovered/Not Resolved]
  - Osteolysis [Not Recovered/Not Resolved]
  - Suspected product contamination [Unknown]

NARRATIVE: CASE EVENT DATE: 20211025
